FAERS Safety Report 4922650-6 (Version None)
Quarter: 2006Q1

REPORT INFORMATION
  Report Type: 
  Country: None (occurrence: None)
  Receive Date: 20060224
  Receipt Date: 20051005
  Transmission Date: 20060701
  Serious: Yes (Hospitalization)
  Sender: FDA-Public Use
  Company Number: CH-BRISTOL-MYERS SQUIBB COMPANY-13293725

PATIENT
  Age: 71 Year
  Sex: Female

DRUGS (8)
  1. TRITTICO [Suspect]
     Indication: DEPRESSION
     Route: 048
     Dates: start: 20050312, end: 20050730
  2. FLUCTINE [Suspect]
     Indication: SLEEP DISORDER
     Route: 048
     Dates: start: 20050201, end: 20050707
  3. BALDRIANWURZEL [Suspect]
     Indication: SLEEP DISORDER
     Route: 048
     Dates: start: 20050301, end: 20050712
  4. HYPERVAL [Suspect]
     Indication: DEPRESSION
     Route: 048
     Dates: start: 20050301, end: 20050712
  5. VALVERDE [Suspect]
     Indication: SLEEP DISORDER
     Route: 048
     Dates: start: 20050401, end: 20050712
  6. MODOPAR [Concomitant]
     Dates: start: 20020101
  7. ASPIRIN [Concomitant]
  8. ACTONEL [Concomitant]

REACTIONS (3)
  - ANOREXIA [None]
  - HEPATIC ENZYME INCREASED [None]
  - NAUSEA [None]
